FAERS Safety Report 6525485-6 (Version None)
Quarter: 2010Q1

REPORT INFORMATION
  Report Type: 
  Country: None (occurrence: None)
  Receive Date: 20100104
  Receipt Date: 20091202
  Transmission Date: 20100710
  Serious: Yes (Hospitalization)
  Sender: FDA-Public Use
  Company Number: FR-SANOFI-AVENTIS-2009SA006310

PATIENT
  Age: 71 Year
  Sex: Female
  Weight: 51 kg

DRUGS (10)
  1. AFLIBERCEPT [Suspect]
     Indication: LUNG ADENOCARCINOMA
     Route: 042
     Dates: start: 20091012, end: 20091012
  2. AFLIBERCEPT [Suspect]
     Route: 042
     Dates: start: 20090121, end: 20090121
  3. DOCETAXEL [Suspect]
     Indication: LUNG ADENOCARCINOMA
     Route: 042
     Dates: start: 20091012, end: 20091012
  4. DOCETAXEL [Suspect]
     Route: 042
     Dates: start: 20090121, end: 20090121
  5. LOGIRENE [Suspect]
     Route: 048
     Dates: start: 20091123, end: 20091202
  6. NEXIUM /UNK/ [Concomitant]
     Indication: PROPHYLAXIS
     Route: 048
     Dates: start: 20090101
  7. NORSET [Concomitant]
     Indication: ANXIETY
     Route: 048
     Dates: start: 20091001
  8. TRIATEC [Concomitant]
     Route: 048
     Dates: start: 20091009
  9. FORTIMEL [Concomitant]
     Route: 048
     Dates: start: 20091001
  10. DI-ANTALVIC [Concomitant]
     Route: 048
     Dates: start: 20090101

REACTIONS (6)
  - BACK PAIN [None]
  - BURNING SENSATION [None]
  - DECREASED APPETITE [None]
  - HYPONATRAEMIA [None]
  - PROTEINURIA [None]
  - PYREXIA [None]
